FAERS Safety Report 23292210 (Version 2)
Quarter: 2024Q2

REPORT INFORMATION
  Report Type: Spontaneous
  Country: GB (occurrence: GB)
  Receive Date: 20231213
  Receipt Date: 20240611
  Transmission Date: 20240716
  Serious: Yes (Death, Other)
  Sender: FDA-Public Use
  Company Number: GB-MYLANLABS-2023M1129356

PATIENT
  Sex: Male

DRUGS (1)
  1. CLOZARIL [Suspect]
     Active Substance: CLOZAPINE
     Indication: Schizophrenia
     Dosage: UNK
     Route: 048
     Dates: start: 20090628, end: 20231129

REACTIONS (3)
  - Neurodegenerative disorder [Fatal]
  - Terminal state [Unknown]
  - Palliative care [Unknown]

NARRATIVE: CASE EVENT DATE: 20231129
